FAERS Safety Report 6238044-X (Version None)
Quarter: 2009Q2

REPORT INFORMATION
  Report Type: 
  Country: None (occurrence: None)
  Receive Date: 20090617
  Receipt Date: 20090605
  Transmission Date: 20091009
  Serious: Yes (Death)
  Sender: FDA-Public Use
  Company Number: 2009SE0017

PATIENT
  Age: 1 Year
  Sex: Male

DRUGS (4)
  1. ORFADIN [Suspect]
     Indication: TYROSINAEMIA
     Dosage: 1 MG/KG (12 MG,1 IN 1 D)
     Dates: start: 20090513, end: 20090514
  2. ACETYLSYCTEIN (ACETYLCYSTEIN) [Concomitant]
  3. CEFUROXIM(CEFUROXIM) [Concomitant]
  4. METRONIDAZOL(METRONIDAZOL) [Concomitant]

REACTIONS (1)
  - BRAIN OEDEMA [None]
